FAERS Safety Report 20884183 (Version 2)
Quarter: 2022Q2

REPORT INFORMATION
  Report Type: Spontaneous
  Country: US (occurrence: US)
  Receive Date: 20220527
  Receipt Date: 20220615
  Transmission Date: 20220721
  Serious: No
  Sender: FDA-Public Use
  Company Number: US-PFIZER INC-202200752163

PATIENT
  Age: 74 Year
  Sex: Female
  Weight: 66.213 kg

DRUGS (2)
  1. PAXLOVID [Suspect]
     Active Substance: NIRMATRELVIR\RITONAVIR
     Indication: COVID-19 treatment
     Dosage: UNK
     Dates: start: 20220510, end: 20220514
  2. TYLENOL [Concomitant]
     Active Substance: ACETAMINOPHEN
     Dosage: UNK

REACTIONS (12)
  - Illness [Not Recovered/Not Resolved]
  - Pyrexia [Unknown]
  - Headache [Unknown]
  - Nasopharyngitis [Unknown]
  - Nasal congestion [Unknown]
  - Rhinorrhoea [Unknown]
  - Sneezing [Unknown]
  - Influenza like illness [Unknown]
  - Myalgia [Unknown]
  - Abdominal discomfort [Unknown]
  - Chills [Unknown]
  - Cough [Unknown]

NARRATIVE: CASE EVENT DATE: 20220517
